FAERS Safety Report 10016439 (Version 1)
Quarter: 2014Q1

REPORT INFORMATION
  Report Type: Spontaneous
  Country: US (occurrence: US)
  Receive Date: 20140317
  Receipt Date: 20140317
  Transmission Date: 20141002
  Serious: Yes (Disabling, Other)
  Sender: FDA-Public Use
  Company Number: CHPA2014US003883

PATIENT
  Age: 86 Year
  Sex: Female

DRUGS (2)
  1. DESENEX (MICONAZOLE) [Suspect]
     Indication: RASH
     Dosage: UNK. DAILY
     Route: 061
  2. DESENEX (MICONAZOLE) [Suspect]
     Indication: OFF LABEL USE

REACTIONS (5)
  - Arthritis [Not Recovered/Not Resolved]
  - Disease progression [Unknown]
  - Disability [Unknown]
  - Incorrect drug administration duration [Unknown]
  - Therapeutic response unexpected [Unknown]
